FAERS Safety Report 25766494 (Version 1)
Quarter: 2025Q3

REPORT INFORMATION
  Report Type: Spontaneous
  Country: US (occurrence: US)
  Receive Date: 20250905
  Receipt Date: 20250905
  Transmission Date: 20251020
  Serious: Yes (Hospitalization)
  Sender: MYLAN
  Company Number: US-MYLANLABS-2025M1074104

PATIENT
  Age: 56 Year
  Sex: Female

DRUGS (16)
  1. HALOPERIDOL [Suspect]
     Active Substance: HALOPERIDOL
     Indication: Product used for unknown indication
  2. HALOPERIDOL [Suspect]
     Active Substance: HALOPERIDOL
     Route: 065
  3. HALOPERIDOL [Suspect]
     Active Substance: HALOPERIDOL
     Route: 065
  4. HALOPERIDOL [Suspect]
     Active Substance: HALOPERIDOL
  5. PALIPERIDONE [Suspect]
     Active Substance: PALIPERIDONE
     Indication: Product used for unknown indication
  6. PALIPERIDONE [Suspect]
     Active Substance: PALIPERIDONE
     Route: 065
  7. PALIPERIDONE [Suspect]
     Active Substance: PALIPERIDONE
     Route: 065
  8. PALIPERIDONE [Suspect]
     Active Substance: PALIPERIDONE
  9. DIVALPROEX SODIUM [Concomitant]
     Active Substance: DIVALPROEX SODIUM
     Indication: Post-traumatic stress disorder
  10. DIVALPROEX SODIUM [Concomitant]
     Active Substance: DIVALPROEX SODIUM
     Indication: Schizoaffective disorder bipolar type
     Route: 065
  11. DIVALPROEX SODIUM [Concomitant]
     Active Substance: DIVALPROEX SODIUM
     Route: 065
  12. DIVALPROEX SODIUM [Concomitant]
     Active Substance: DIVALPROEX SODIUM
  13. DULOXETINE [Concomitant]
     Active Substance: DULOXETINE
     Indication: Post-traumatic stress disorder
  14. DULOXETINE [Concomitant]
     Active Substance: DULOXETINE
     Route: 065
  15. DULOXETINE [Concomitant]
     Active Substance: DULOXETINE
     Route: 065
  16. DULOXETINE [Concomitant]
     Active Substance: DULOXETINE

REACTIONS (2)
  - Wrong product administered [Recovering/Resolving]
  - Neuroleptic malignant syndrome [Recovering/Resolving]
